FAERS Safety Report 21547005 (Version 1)
Quarter: 2022Q4

REPORT INFORMATION
  Report Type: Spontaneous
  Country: IN (occurrence: IN)
  Receive Date: 20221103
  Receipt Date: 20221103
  Transmission Date: 20230113
  Serious: Yes (Other)
  Sender: FDA-Public Use
  Company Number: IN-BAYER-2022P015685

PATIENT
  Age: 84 Year
  Sex: Male

DRUGS (2)
  1. EYLEA [Suspect]
     Active Substance: AFLIBERCEPT
     Indication: Neovascular age-related macular degeneration
     Dosage: 4 INJECTIONS RECEIVED PRIOR TO THE EVENTS; SOLUTION FOR INJECTION; 40 MG/ML
  2. EYLEA [Suspect]
     Active Substance: AFLIBERCEPT
     Dosage: OS; SOLUTION FOR INJECTION, 40 MG/ML
     Route: 031
     Dates: start: 20220920, end: 20220920

REACTIONS (5)
  - Sudden visual loss [Recovered/Resolved with Sequelae]
  - Endophthalmitis [Recovering/Resolving]
  - Eye infection [Recovering/Resolving]
  - Visual acuity reduced [Not Recovered/Not Resolved]
  - Eye pain [Recovering/Resolving]

NARRATIVE: CASE EVENT DATE: 20220923
